FAERS Safety Report 7994360-2 (Version None)
Quarter: 2011Q4

REPORT INFORMATION
  Report Type: 
  Country: None (occurrence: None)
  Receive Date: 20111220
  Receipt Date: 20111024
  Transmission Date: 20120403
  Serious: No
  Sender: FDA-Public Use
  Company Number: US-GLAXOSMITHKLINE-A0950271A

PATIENT
  Age: 62 Year
  Sex: Female

DRUGS (8)
  1. PRILOSEC [Concomitant]
  2. SORIATANE [Suspect]
     Indication: PSORIASIS
     Dosage: 25MG PER DAY
     Route: 048
     Dates: start: 20111003
  3. METOPROLOL TARTRATE [Concomitant]
  4. VITAMIN D [Concomitant]
  5. CLOBETASOL PROPIONATE [Concomitant]
  6. HUMIRA [Concomitant]
  7. CALCIUM [Concomitant]
  8. LISINOPRIL [Concomitant]

REACTIONS (2)
  - RASH [None]
  - PRURITUS [None]
